FAERS Safety Report 6675679-4 (Version None)
Quarter: 2010Q2

REPORT INFORMATION
  Report Type: 
  Country: None (occurrence: None)
  Receive Date: 20100409
  Receipt Date: 20100326
  Transmission Date: 20101027
  Serious: Yes (Hospitalization)
  Sender: FDA-Public Use
  Company Number: US-ELI_LILLY_AND_COMPANY-US201003001579

PATIENT
  Age: 82 Year
  Sex: Female
  Weight: 58.05 kg

DRUGS (1)
  1. FORTEO [Suspect]
     Indication: OSTEOPOROSIS
     Dosage: 20 UG, DAILY (1/D)
     Dates: start: 20091112, end: 20091229

REACTIONS (4)
  - FATIGUE [None]
  - MALAISE [None]
  - PNEUMONIA [None]
  - THROMBOSIS [None]
